FAERS Safety Report 13116487 (Version 1)
Quarter: 2017Q1

REPORT INFORMATION
  Report Type: Spontaneous
  Country: FR (occurrence: FR)
  Receive Date: 20170116
  Receipt Date: 20170116
  Transmission Date: 20170428
  Serious: Yes (Other)
  Sender: FDA-Public Use
  Company Number: FR-009507513-1701FRA005938

PATIENT
  Sex: Female
  Weight: 65 kg

DRUGS (1)
  1. ETONOGESTREL IMPLANT- UNKNOWN [Suspect]
     Active Substance: ETONOGESTREL
     Indication: CONTRACEPTION
     Dosage: UNK
     Route: 059

REACTIONS (2)
  - Genitourinary chlamydia infection [Unknown]
  - Breast prosthesis implantation [Unknown]

NARRATIVE: CASE EVENT DATE: 2011
